APPROVED DRUG PRODUCT: CAPECITABINE
Active Ingredient: CAPECITABINE
Strength: 500MG
Dosage Form/Route: TABLET;ORAL
Application: A211724 | Product #002 | TE Code: AB
Applicant: RELIANCE LIFE SCIENCES PVT LTD
Approved: Apr 27, 2020 | RLD: No | RS: No | Type: RX